FAERS Safety Report 5305496-9 (Version None)
Quarter: 2007Q2

REPORT INFORMATION
  Report Type: 
  Country: None (occurrence: None)
  Receive Date: 20070424
  Receipt Date: 20070413
  Transmission Date: 20071010
  Serious: Yes (Disabling)
  Sender: FDA-Public Use
  Company Number: CA-NOVOPROD-262757

PATIENT
  Sex: Female

DRUGS (2)
  1. NOVOLIN GE NPH [Suspect]
     Indication: DRUG USE FOR UNKNOWN INDICATION
     Dosage: 26 IU, QD (AT BEDTIME)
     Route: 058
  2. NOVOLIN GE TORONTO [Suspect]
     Indication: DRUG USE FOR UNKNOWN INDICATION
     Dosage: 26 IU, QD ( 8 + 6 + 12)
     Route: 058

REACTIONS (3)
  - BLINDNESS [None]
  - BLOOD GLUCOSE FLUCTUATION [None]
  - MALAISE [None]
